FAERS Safety Report 19408530 (Version 2)
Quarter: 2022Q3

REPORT INFORMATION
  Report Type: Spontaneous
  Country: US (occurrence: None)
  Receive Date: 20210612
  Receipt Date: 20220919
  Transmission Date: 20221027
  Serious: Yes (Hospitalization)
  Sender: FDA-Public Use
  Company Number: US-ROCHE-2540202

PATIENT
  Sex: Female
  Weight: 78 kg

DRUGS (5)
  1. TAMIFLU [Suspect]
     Active Substance: OSELTAMIVIR PHOSPHATE
     Indication: Product used for unknown indication
     Route: 065
  2. XOLAIR [Suspect]
     Active Substance: OMALIZUMAB
     Indication: Product used for unknown indication
     Route: 058
  3. PREDNISONE [Concomitant]
     Active Substance: PREDNISONE
  4. VANCOMYCIN [Concomitant]
     Active Substance: VANCOMYCIN
  5. ITRACONAZOLE [Concomitant]
     Active Substance: ITRACONAZOLE

REACTIONS (3)
  - Pneumothorax [Unknown]
  - Fatigue [Unknown]
  - Off label use [Unknown]
